FAERS Safety Report 10635253 (Version 3)
Quarter: 2015Q3

REPORT INFORMATION
  Report Type: Spontaneous
  Country: US (occurrence: US)
  Receive Date: 20141205
  Receipt Date: 20150903
  Transmission Date: 20151125
  Serious: Yes (Life-Threatening, Hospitalization, Other)
  Sender: FDA-Public Use
  Company Number: US-BAYER-2014-179532

PATIENT
  Age: 24 Year
  Sex: Female
  Weight: 65.31 kg

DRUGS (3)
  1. MIRENA [Suspect]
     Active Substance: LEVONORGESTREL
     Indication: CONTRACEPTION
     Dosage: 20 MCG/24HR, CONT
     Route: 015
     Dates: start: 20091014, end: 20120111
  2. CITALOPRAM [Concomitant]
     Active Substance: CITALOPRAM HYDROBROMIDE
     Dosage: 20 MG, UNK
  3. ACYCLOVIR [ACICLOVIR SODIUM] [Concomitant]
     Dosage: 400 MG, TID

REACTIONS (14)
  - Ectopic pregnancy with contraceptive device [None]
  - Infection [None]
  - Emotional distress [None]
  - Uterine perforation [None]
  - Abdominal pain [None]
  - Injury [None]
  - General physical health deterioration [None]
  - Uterine scar [None]
  - Anhedonia [None]
  - Panic attack [Not Recovered/Not Resolved]
  - Hypochondriasis [Not Recovered/Not Resolved]
  - Drug ineffective [None]
  - Anxiety [None]
  - Depression [Not Recovered/Not Resolved]

NARRATIVE: CASE EVENT DATE: 201201
